FAERS Safety Report 7191585-3 (Version None)
Quarter: 2010Q4

REPORT INFORMATION
  Report Type: 
  Country: None (occurrence: None)
  Receive Date: 20101223
  Receipt Date: 20100817
  Transmission Date: 20110411
  Serious: No
  Sender: FDA-Public Use
  Company Number: US-AMGEN-KDL432018

PATIENT

DRUGS (14)
  1. ENBREL [Suspect]
     Indication: PRODUCT USED FOR UNKNOWN INDICATION
     Dosage: 50 MG, QWK
     Route: 058
  2. CALCIUM CARBONATE [Concomitant]
  3. LOVASTATIN [Concomitant]
     Dosage: 20 MG, UNK
  4. ATENOLOL [Concomitant]
     Dosage: 25 MG, UNK
  5. GABAPENTIN [Concomitant]
     Dosage: 300 MG, UNK
  6. METFORMIN HCL [Concomitant]
     Dosage: 850 MG, UNK
  7. CITALOPRAM [Concomitant]
     Dosage: 20 MG, UNK
  8. OMEPRAZOLE [Concomitant]
     Dosage: 20 MG, UNK
  9. PROMETHAZINE [Concomitant]
     Dosage: 25 MG, UNK
  10. ALBUTEROL SULFATE [Concomitant]
     Dosage: 90 MG, UNK
  11. SPIRONOLACTONE [Concomitant]
     Dosage: 25 MG, UNK
  12. ACETAMINOPHEN AND OXYCODONE HCL [Concomitant]
     Dosage: 325 MG, UNK
  13. OXYCODONE HYDROCHLORIDE [Concomitant]
     Dosage: 80 MG, UNK
  14. ESTRADIOL [Concomitant]
     Dosage: 1 MG, UNK

REACTIONS (2)
  - RASH PRURITIC [None]
  - URTICARIA [None]
